FAERS Safety Report 17366889 (Version 2)
Quarter: 2020Q1

REPORT INFORMATION
  Report Type: Spontaneous
  Country: HR (occurrence: HR)
  Receive Date: 20200204
  Receipt Date: 20200213
  Transmission Date: 20200409
  Serious: Yes (Other)
  Sender: FDA-Public Use
  Company Number: HR-US-PROVELL PHARMACEUTICALS LLC-9142256

PATIENT
  Age: 63 Year
  Sex: Female

DRUGS (3)
  1. CONCOR COR [Concomitant]
     Active Substance: BISOPROLOL FUMARATE
     Indication: PRODUCT USED FOR UNKNOWN INDICATION
  2. EUTHYROX NF [Suspect]
     Active Substance: LEVOTHYROXINE SODIUM
     Indication: HYPOTHYROIDISM
     Route: 048
     Dates: start: 20191215, end: 20200120
  3. VOLTAREN RAPID [Concomitant]
     Active Substance: DICLOFENAC POTASSIUM
     Indication: PRODUCT USED FOR UNKNOWN INDICATION

REACTIONS (6)
  - Rectal haemorrhage [Unknown]
  - Headache [Recovered/Resolved]
  - Back pain [Recovered/Resolved]
  - Haemorrhoids [Recovering/Resolving]
  - Palpitations [Recovered/Resolved]
  - Vertigo [Recovered/Resolved]

NARRATIVE: CASE EVENT DATE: 20191230
